FAERS Safety Report 4511670-1 (Version None)
Quarter: 2004Q4

REPORT INFORMATION
  Report Type: 
  Country: None (occurrence: None)
  Receive Date: 20041123
  Receipt Date: 20041123
  Transmission Date: 20050328
  Serious: Yes (Hospitalization)
  Sender: FDA-Public Use
  Company Number: None

PATIENT
  Sex: Male
  Weight: 8.2 kg

DRUGS (2)
  1. TRIAMINIC CHLORPHENIRAMINE 1 MG/SUDAFED TRIAMINIC [Suspect]
     Indication: NASOPHARYNGITIS
     Dosage: ORAL
     Route: 048
     Dates: start: 20040824, end: 20040829
  2. TRIAMINIC CHLORPHENIRAMINE 1 MG/SUDAFED TRIAMINIC [Suspect]
     Indication: RHINORRHOEA
     Dosage: ORAL
     Route: 048
     Dates: start: 20040824, end: 20040829

REACTIONS (2)
  - CRYING [None]
  - DYSTONIA [None]
